FAERS Safety Report 7463144-6 (Version None)
Quarter: 2011Q2

REPORT INFORMATION
  Report Type: 
  Country: None (occurrence: None)
  Receive Date: 20110506
  Receipt Date: 20110502
  Transmission Date: 20111010
  Serious: Yes (Life-Threatening, Hospitalization)
  Sender: FDA-Public Use
  Company Number: FR-PFIZER INC-2011097131

PATIENT
  Age: 53 Year
  Sex: Female

DRUGS (2)
  1. PANTOPRAZOLE [Suspect]
     Indication: PROPHYLAXIS
     Dosage: UNK
     Route: 065
  2. IPILIMUMAB [Suspect]
     Indication: MALIGNANT MELANOMA
     Dosage: 3 MG/KG, EVERY 3 WEEKS
     Route: 042
     Dates: start: 20110114

REACTIONS (1)
  - COLITIS [None]
